FAERS Safety Report 8307385-4 (Version None)
Quarter: 2012Q2

REPORT INFORMATION
  Report Type: 
  Country: None (occurrence: None)
  Receive Date: 20120424
  Receipt Date: 20120419
  Transmission Date: 20120825
  Serious: Yes (Other)
  Sender: FDA-Public Use
  Company Number: US-BAYER-2012-039073

PATIENT
  Age: 64 Year
  Sex: Female

DRUGS (7)
  1. ZOFRAN [Concomitant]
  2. VALIUM [Concomitant]
  3. ACTIQ [Concomitant]
  4. QUINAPRIL [Concomitant]
  5. LEVAQUIN [Concomitant]
  6. AVELOX [Suspect]
     Indication: DIVERTICULITIS
     Dosage: UNK
     Route: 042
     Dates: start: 20111201, end: 20120101
  7. ASPIRIN [Concomitant]

REACTIONS (3)
  - PAIN IN EXTREMITY [None]
  - OEDEMA PERIPHERAL [None]
  - TENDON RUPTURE [None]
